FAERS Safety Report 19979224 (Version 1)
Quarter: 2021Q4

REPORT INFORMATION
  Report Type: Spontaneous
  Country: JP (occurrence: JP)
  Receive Date: 20211020
  Receipt Date: 20211020
  Transmission Date: 20220303
  Serious: Yes (Hospitalization)
  Sender: FDA-Public Use
  Company Number: JP-EISAI-202107270_FYC_P_1

PATIENT
  Age: 63 Year
  Sex: Male

DRUGS (6)
  1. PERAMPANEL [Suspect]
     Active Substance: PERAMPANEL
     Indication: Status epilepticus
     Dosage: DOSE AND FREQUENCY UNKNOWN
     Route: 048
  2. PROPOFOL [Concomitant]
     Active Substance: PROPOFOL
     Indication: Sedative therapy
     Dosage: DOSE AND FREQUENCY UNKNOWN
     Route: 041
  3. PROPOFOL [Concomitant]
     Active Substance: PROPOFOL
     Dosage: DOSE AND FREQUENCY UNKNOWN
     Route: 041
  4. PROPOFOL [Concomitant]
     Active Substance: PROPOFOL
     Dosage: DOSE AND FREQUENCY UNKNOWN
     Route: 041
  5. LEVETIRACETAM [Concomitant]
     Active Substance: LEVETIRACETAM
     Indication: Muscle spasms
     Dosage: DOSE AND FREQUENCY UNKNOWN
     Route: 065
  6. FENTANYL [Concomitant]
     Active Substance: FENTANYL
     Indication: Sedative therapy
     Dosage: DOSE AND FREQUENCY UNKNOWN
     Route: 065

REACTIONS (3)
  - Sputum retention [Unknown]
  - Muscle atrophy [Unknown]
  - Dysphagia [Unknown]
